FAERS Safety Report 18152546 (Version 1)
Quarter: 2020Q3

REPORT INFORMATION
  Report Type: Spontaneous
  Country: FR (occurrence: FR)
  Receive Date: 20200814
  Receipt Date: 20200814
  Transmission Date: 20201103
  Serious: Yes (Hospitalization, Other)
  Sender: FDA-Public Use
  Company Number: FR-PURDUE-USA-2020-0162141

PATIENT
  Sex: Female

DRUGS (6)
  1. ATOSIBAN [Suspect]
     Active Substance: ATOSIBAN
     Indication: UTERINE CONTRACTIONS DURING PREGNANCY
     Route: 064
  2. MORPHINE SULFATE (SIMILAR TO NDA 19?516) [Suspect]
     Active Substance: MORPHINE SULFATE
     Indication: PROCEDURAL PAIN
     Dosage: UNK
     Route: 064
  3. MORPHINE [Suspect]
     Active Substance: MORPHINE
     Indication: BACK PAIN
     Dosage: UNK
     Route: 064
  4. NEFOPAM [Suspect]
     Active Substance: NEFOPAM
     Indication: PROCEDURAL PAIN
     Dosage: 120 MG, DAILY
     Route: 064
  5. OXYCODONE HYDROCHLORIDE. [Suspect]
     Active Substance: OXYCODONE HYDROCHLORIDE
     Indication: PROCEDURAL PAIN
     Dosage: 5 MG, QID
     Route: 064
  6. OXYNORM [Suspect]
     Active Substance: OXYCODONE HYDROCHLORIDE
     Indication: BACK PAIN
     Dosage: 50 MG, DAILY (PATIENT CONTROLLED ANALGESIA)
     Route: 064

REACTIONS (6)
  - Foetal megacystis [Recovered/Resolved]
  - Premature baby [Recovered/Resolved]
  - Ascites [Recovered/Resolved]
  - Peritonitis [Recovered/Resolved]
  - Urinary bladder rupture [Recovered/Resolved]
  - Foetal exposure during pregnancy [Recovered/Resolved]
